FAERS Safety Report 7372841-2 (Version None)
Quarter: 2011Q1

REPORT INFORMATION
  Report Type: 
  Country: None (occurrence: None)
  Receive Date: 20110324
  Receipt Date: 20110318
  Transmission Date: 20110831
  Serious: Yes (Hospitalization, Other)
  Sender: FDA-Public Use
  Company Number: DE-PFIZER INC-2010158276

PATIENT
  Age: 70 Year
  Sex: Male

DRUGS (12)
  1. CEFTRIAXONE SODIUM [Concomitant]
  2. CIPRALEX [Concomitant]
  3. HUMINSULIN BASAL [Concomitant]
  4. ASPIRIN [Concomitant]
  5. TRIARESE [Concomitant]
  6. HUMALOG [Concomitant]
  7. BISOPROLOL [Concomitant]
     Dosage: UNK
  8. SIMVASTATIN [Concomitant]
  9. ZIENAM [Concomitant]
  10. ZYVOX [Suspect]
     Indication: ENDOCARDITIS
     Dosage: 600 MG, 2X/DAY
     Route: 042
     Dates: start: 20101115, end: 20101125
  11. MARCUMAR [Concomitant]
  12. CORDAREX [Concomitant]
     Dosage: UNK

REACTIONS (6)
  - EPISTAXIS [None]
  - HEADACHE [None]
  - VOMITING [None]
  - NAUSEA [None]
  - THROMBOCYTOPENIA [None]
  - ANAEMIA [None]
